FAERS Safety Report 18528770 (Version 2)
Quarter: 2022Q3

REPORT INFORMATION
  Report Type: Spontaneous
  Country: IT (occurrence: IT)
  Receive Date: 20201120
  Receipt Date: 20220901
  Transmission Date: 20221027
  Serious: Yes (Death, Life-Threatening, Hospitalization, Other)
  Sender: FDA-Public Use
  Company Number: None

PATIENT
  Age: 32 Year
  Sex: Female
  Weight: 76 kg

DRUGS (5)
  1. MYCOPHENOLATE MOFETIL [Suspect]
     Active Substance: MYCOPHENOLATE MOFETIL
     Indication: Lung transplant
     Dosage: 2 GRAM, QD
     Route: 065
  2. CYCLOSPORINE [Suspect]
     Active Substance: CYCLOSPORINE
     Indication: Lung transplant
     Dosage: 1 MG/KG/DAY (PLASMATIC CYCLOSPORINE CONCENTRATION TARGET OF 200NG/ML)
     Route: 042
  3. METHYLPREDNISOLONE [Suspect]
     Active Substance: METHYLPREDNISOLONE
     Indication: Lung transplant
     Dosage: 0.5 MG/KG/DAY
     Route: 042
  4. IVEGAM CMV [Concomitant]
     Active Substance: HUMAN CYTOMEGALOVIRUS IMMUNE GLOBULIN
     Indication: Antiviral prophylaxis
     Dosage: 75 INTERNATIONAL UNIT/KILOGRAM (EVERY 4 DAYS)
     Route: 042
  5. IVEGAM CMV [Concomitant]
     Active Substance: HUMAN CYTOMEGALOVIRUS IMMUNE GLOBULIN
     Dosage: POTENTIATED UP TO 75 IU/KG/DAY
     Route: 065

REACTIONS (14)
  - Wound dehiscence [Fatal]
  - Septic shock [Fatal]
  - Klebsiella infection [Fatal]
  - Large intestine perforation [Recovered/Resolved]
  - Acute respiratory failure [Recovered/Resolved]
  - Cytomegalovirus infection [Recovered/Resolved]
  - Colitis [Recovered/Resolved]
  - Peritonitis [Recovered/Resolved]
  - Cytomegalovirus viraemia [Recovered/Resolved]
  - Abdominal pain [Recovered/Resolved]
  - Diarrhoea [Recovered/Resolved]
  - Lower gastrointestinal haemorrhage [Recovered/Resolved]
  - Intestinal dilatation [Recovered/Resolved]
  - Cytomegalovirus colitis [Recovered/Resolved]
